FAERS Safety Report 4726884-5 (Version None)
Quarter: 2005Q3

REPORT INFORMATION
  Report Type: 
  Country: None (occurrence: None)
  Receive Date: 20050725
  Receipt Date: 20050725
  Transmission Date: 20060218
  Serious: Yes (Hospitalization)
  Sender: FDA-Public Use
  Company Number: None

PATIENT
  Age: 58 Year
  Sex: Male
  Weight: 59.8748 kg

DRUGS (9)
  1. LINEZOLID 600MG [Suspect]
     Indication: OSTEOMYELITIS
     Dosage: 600MG BID ORAL
     Route: 048
     Dates: start: 20050423, end: 20050503
  2. OMEPRAZOLE [Concomitant]
  3. FOLIC ACID [Concomitant]
  4. IRON SULFATETHIAMIN COMPOUND TAB [Concomitant]
  5. DILTIAZEM [Concomitant]
  6. PANCRELIPASE [Concomitant]
  7. GATIFLOXACIN [Concomitant]
  8. NEUTRA-PHOS [Concomitant]
  9. TRAMADOL HCL [Concomitant]

REACTIONS (6)
  - HAEMATOCRIT DECREASED [None]
  - HAEMOGLOBIN DECREASED [None]
  - PANCYTOPENIA [None]
  - PLATELET COUNT DECREASED [None]
  - SYNCOPE [None]
  - WHITE BLOOD CELL COUNT DECREASED [None]
